FAERS Safety Report 8156315-7 (Version None)
Quarter: 2012Q1

REPORT INFORMATION
  Report Type: 
  Country: None (occurrence: None)
  Receive Date: 20120222
  Receipt Date: 20110801
  Transmission Date: 20120608
  Serious: Yes (Other)
  Sender: FDA-Public Use
  Company Number: US-BRISTOL-MYERS SQUIBB COMPANY-15841653

PATIENT
  Age: 59 Year
  Sex: Female
  Weight: 62 kg

DRUGS (8)
  1. KENALOG [Suspect]
     Indication: EYE INFLAMMATION
     Route: 031
     Dates: start: 20110331
  2. LUNESTA [Concomitant]
  3. PAMELOR [Concomitant]
  4. VALACYCLOVIR [Concomitant]
  5. ZOMETA [Concomitant]
  6. DEXAMETHASONE [Concomitant]
  7. AVASTIN [Suspect]
     Indication: EYE INFLAMMATION
     Dates: start: 20110531
  8. HYDROCODONE [Concomitant]

REACTIONS (2)
  - VITREOUS FLOATERS [None]
  - VISUAL ACUITY REDUCED [None]
